FAERS Safety Report 7702429-2 (Version None)
Quarter: 2011Q3

REPORT INFORMATION
  Report Type: 
  Country: None (occurrence: None)
  Receive Date: 20110822
  Receipt Date: 20110817
  Transmission Date: 20111222
  Serious: Yes (Hospitalization)
  Sender: FDA-Public Use
  Company Number: US-BRISTOL-MYERS SQUIBB COMPANY-15979057

PATIENT
  Age: 80 Year
  Sex: Male

DRUGS (6)
  1. COUMADIN [Suspect]
  2. LANOXIN [Concomitant]
  3. EXELON [Concomitant]
  4. NAMENDA [Interacting]
     Indication: DEMENTIA
     Dosage: 5MG BID:JUN-JUN2011 15MG/DAY:JUN-JUL2011 10MG BID:JUL-03AUG2011
     Route: 048
     Dates: start: 20110601, end: 20110803
  5. LASIX [Concomitant]
  6. POTASSIUM ACETATE [Concomitant]

REACTIONS (4)
  - FALL [None]
  - DEMENTIA [None]
  - DRUG INTERACTION [None]
  - HAEMORRHAGIC STROKE [None]
